FAERS Safety Report 21141344 (Version 3)
Quarter: 2023Q1

REPORT INFORMATION
  Report Type: Report from Study
  Country: FR (occurrence: FR)
  Receive Date: 20220728
  Receipt Date: 20230111
  Transmission Date: 20230417
  Serious: Yes (Hospitalization, Other)
  Sender: FDA-Public Use
  Company Number: FR-ABBVIE-22K-056-4445592-00

PATIENT
  Age: 67 Year
  Sex: Male

DRUGS (2)
  1. CARBIDOPA\LEVODOPA [Suspect]
     Active Substance: CARBIDOPA\LEVODOPA
     Indication: Parkinson^s disease
     Route: 050
     Dates: start: 202007, end: 202206
  2. CARBIDOPA\LEVODOPA [Suspect]
     Active Substance: CARBIDOPA\LEVODOPA

REACTIONS (10)
  - Jejunal perforation [Unknown]
  - Intussusception [Recovered/Resolved]
  - Device expulsion [Recovered/Resolved]
  - Therapeutic product effect decreased [Unknown]
  - Anal fistula [Unknown]
  - Device dislocation [Unknown]
  - Device expulsion [Unknown]
  - Intestinal perforation [Unknown]
  - Device dislocation [Unknown]
  - Transillumination [Unknown]

NARRATIVE: CASE EVENT DATE: 20220101
